FAERS Safety Report 8909712 (Version 1)
Quarter: 2012Q4

REPORT INFORMATION
  Report Type: Spontaneous
  Country: US (occurrence: None)
  Receive Date: 20121109
  Receipt Date: 20121109
  Transmission Date: 20130627
  Serious: Yes (Other)
  Sender: FDA-Public Use
  Company Number: USA/USA/12/0026564

PATIENT
  Age: 43 Year
  Sex: Male

DRUGS (3)
  1. TACROLIMUS CAPSULES [Suspect]
     Indication: LUNG TRANSPLANT
  2. MYCOPHENOLATE MOFETIL [Suspect]
  3. METHYLPREDNISONE [Suspect]

REACTIONS (4)
  - Hepatotoxicity [None]
  - Cardiac tamponade [None]
  - Hepatitis C RNA increased [None]
  - Pneumonia [None]
